FAERS Safety Report 15535671 (Version 2)
Quarter: 2020Q1

REPORT INFORMATION
  Report Type: Spontaneous
  Country: US (occurrence: US)
  Receive Date: 20181022
  Receipt Date: 20200106
  Transmission Date: 20200409
  Serious: No
  Sender: FDA-Public Use
  Company Number: US-PFIZER INC-2018424434

PATIENT
  Age: 73 Year
  Sex: Female

DRUGS (1)
  1. XELJANZ XR [Suspect]
     Active Substance: TOFACITINIB CITRATE
     Dosage: 11 MG, 1X/DAY [QD]
     Route: 048
     Dates: start: 201710, end: 201909

REACTIONS (5)
  - Oedema [Unknown]
  - Herpes zoster [Unknown]
  - Wound haemorrhage [Unknown]
  - Peripheral swelling [Unknown]
  - Pruritus [Unknown]
